FAERS Safety Report 6400949-4 (Version None)
Quarter: 2009Q4

REPORT INFORMATION
  Report Type: 
  Country: None (occurrence: None)
  Receive Date: 20091015
  Receipt Date: 20070612
  Transmission Date: 20100525
  Serious: Yes (Other)
  Sender: FDA-Public Use
  Company Number: US-ASTRAZENECA-2006UW22449

PATIENT
  Age: 13716 Day
  Sex: Male
  Weight: 85.3 kg

DRUGS (3)
  1. SEROQUEL [Suspect]
     Indication: SCHIZOPHRENIA
     Route: 048
     Dates: start: 20020616, end: 20060703
  2. SEROQUEL [Suspect]
     Route: 048
     Dates: start: 20030101
  3. NEURONTIN [Concomitant]
     Dates: start: 20030101

REACTIONS (3)
  - DIABETES MELLITUS [None]
  - DIABETES MELLITUS INADEQUATE CONTROL [None]
  - NEUROPATHY PERIPHERAL [None]
